FAERS Safety Report 14299974 (Version 3)
Quarter: 2018Q1

REPORT INFORMATION
  Report Type: Report from Study
  Country: RU (occurrence: RU)
  Receive Date: 20171219
  Receipt Date: 20180123
  Transmission Date: 20180509
  Serious: Yes (Hospitalization)
  Sender: FDA-Public Use
  Company Number: RU-ROCHE-1796398

PATIENT
  Age: 34 Year
  Sex: Female
  Weight: 55.5 kg

DRUGS (52)
  1. OCRELIZUMAB. [Suspect]
     Active Substance: OCRELIZUMAB
     Indication: RELAPSING-REMITTING MULTIPLE SCLEROSIS
     Dosage: OLE-WEEK 0?INFUSION SLOWED DOWN DUE TO INFUSION RELATED REACTION.?THE FIRST CYCLE OF THE OLE PHASE C
     Route: 042
     Dates: start: 20141105, end: 20141105
  2. OCRELIZUMAB. [Suspect]
     Active Substance: OCRELIZUMAB
     Dosage: OLE-WEEK 144?CYCLE 6 ONWARDS OF THE OLE PHASE CONSISTS OF A SINGLE OCRELIZUMAB ADMINISTRATION EVERY
     Route: 042
     Dates: start: 20170810, end: 20170810
  3. ETHINYLESTRADIOL [Concomitant]
     Active Substance: ETHINYL ESTRADIOL
     Route: 065
     Dates: start: 20121114
  4. PLANTAIN [Concomitant]
     Route: 065
     Dates: start: 20130225, end: 20130227
  5. PLACEBO [Suspect]
     Active Substance: UNSPECIFIED INGREDIENT
     Indication: RELAPSING-REMITTING MULTIPLE SCLEROSIS
     Dosage: WEEK 1?THE FIRST CYCLE CONSISTS OF 2 HALF DOSE OF PLACEBO ADMINISTRATIONS SEPARATED BY 14 DAYS FOR T
     Route: 042
     Dates: start: 20121212, end: 20121212
  6. PLACEBO [Suspect]
     Active Substance: UNSPECIFIED INGREDIENT
     Dosage: DELAYED DOSING VISIT?THE FIRST CYCLE CONSISTS OF 2 HALF DOSE OF PLACEBO ADMINISTRATIONS SEPARATED BY
     Route: 042
     Dates: start: 20130606, end: 20130606
  7. OCRELIZUMAB. [Suspect]
     Active Substance: OCRELIZUMAB
     Dosage: OLE-WEEK 96?CYCLE 6 ONWARDS OF THE OLE PHASE CONSISTS OF A SINGLE OCRELIZUMAB ADMINISTRATION EVERY 2
     Route: 042
     Dates: start: 20160902, end: 20160902
  8. METHYLPREDNISOLONE. [Concomitant]
     Active Substance: METHYLPREDNISOLONE
     Dosage: OLE-WEEK 96
     Route: 042
     Dates: start: 20160902, end: 20160902
  9. QLAIRA [Concomitant]
     Active Substance: DIENOGEST\ESTRADIOL VALERATE
     Route: 065
     Dates: start: 20160516
  10. AMBROXOL [Concomitant]
     Active Substance: AMBROXOL
     Route: 065
     Dates: start: 20160307, end: 20160311
  11. REMANTADIN [Concomitant]
     Route: 065
     Dates: start: 20160307, end: 20160309
  12. METHYLPREDNISOLONE. [Concomitant]
     Active Substance: METHYLPREDNISOLONE
     Dosage: DELAYED DOSING VISIT
     Route: 042
     Dates: start: 20130606, end: 20130606
  13. LASOLVAN [Concomitant]
     Active Substance: AMBROXOL HYDROCHLORIDE
     Route: 065
     Dates: start: 20130225, end: 20130227
  14. REMANTADIN [Concomitant]
     Route: 065
     Dates: start: 20151007, end: 20151008
  15. METHYLPREDNISOLONE. [Concomitant]
     Active Substance: METHYLPREDNISOLONE
     Dosage: WEEK 2
     Route: 042
     Dates: start: 20121225, end: 20121225
  16. METHYLPREDNISOLONE. [Concomitant]
     Active Substance: METHYLPREDNISOLONE
     Dosage: WEEK 72
     Route: 042
     Dates: start: 20140429, end: 20140429
  17. METHYLPREDNISOLONE. [Concomitant]
     Active Substance: METHYLPREDNISOLONE
     Dosage: OLE-WEEK 72
     Route: 042
     Dates: start: 20160322, end: 20160322
  18. GLYCINE. [Concomitant]
     Active Substance: GLYCINE
     Route: 065
     Dates: start: 20170118, end: 20170130
  19. ACILOC (RUSSIA) [Concomitant]
     Route: 065
     Dates: start: 20170123, end: 20170125
  20. REMANTADIN [Concomitant]
     Route: 065
     Dates: start: 20160310, end: 20160312
  21. METHYLPREDNISOLONE. [Concomitant]
     Active Substance: METHYLPREDNISOLONE
     Dosage: WEEK 48
     Route: 042
     Dates: start: 20131112, end: 20131112
  22. METHYLPREDNISOLONE. [Concomitant]
     Active Substance: METHYLPREDNISOLONE
     Dosage: OLE-WEEK 2
     Route: 042
     Dates: start: 20141120, end: 20141120
  23. ACILOC (RUSSIA) [Concomitant]
     Route: 065
     Dates: start: 20170126, end: 20170130
  24. OMEZ [Concomitant]
     Active Substance: OMEPRAZOLE
     Route: 065
     Dates: start: 20170123, end: 20170130
  25. OCRELIZUMAB. [Suspect]
     Active Substance: OCRELIZUMAB
     Dosage: OLE-WEEK 120?CYCLE 6 ONWARDS OF THE OLE PHASE CONSISTS OF A SINGLE OCRELIZUMAB ADMINISTRATION EVERY
     Route: 042
     Dates: start: 20170227, end: 20170227
  26. KETOPROFEN. [Concomitant]
     Active Substance: KETOPROFEN
     Route: 065
     Dates: start: 20141224, end: 20141230
  27. BIOPAROX [Concomitant]
     Route: 065
     Dates: start: 20160307, end: 20160310
  28. METHYLPREDNISOLONE. [Concomitant]
     Active Substance: METHYLPREDNISOLONE
     Dosage: OLE-WEEK 0
     Route: 042
     Dates: start: 20141105, end: 20141105
  29. METHYLPREDNISOLONE. [Concomitant]
     Active Substance: METHYLPREDNISOLONE
     Dosage: OLE-WEEK 48
     Route: 042
     Dates: start: 20151022, end: 20151022
  30. AZITROMICINA [Concomitant]
     Active Substance: AZITHROMYCIN DIHYDRATE
     Route: 065
     Dates: start: 20151006, end: 20151008
  31. THIOCTACID [Concomitant]
     Active Substance: THIOCTIC ACID
     Route: 065
     Dates: start: 20170118, end: 20170125
  32. SOLU-MEDROL [Concomitant]
     Active Substance: METHYLPREDNISOLONE SODIUM SUCCINATE
     Route: 065
     Dates: start: 20170126, end: 20170130
  33. OCRELIZUMAB. [Suspect]
     Active Substance: OCRELIZUMAB
     Dosage: OLE-WEEK 2?THE FIRST CYCLE OF THE OLE PHASE CONSISTS OF 2 OCRELIZUMAB ADMINISTRATIONS SEPARATED BY 1
     Route: 042
     Dates: start: 20141120, end: 20141120
  34. OCRELIZUMAB. [Suspect]
     Active Substance: OCRELIZUMAB
     Dosage: OLE-WEEK 48?CYCLE 6 ONWARDS OF THE OLE PHASE CONSISTS OF A SINGLE OCRELIZUMAB ADMINISTRATION EVERY 2
     Route: 042
     Dates: start: 20151022, end: 20151022
  35. DROSPIRENONE [Concomitant]
     Active Substance: DROSPIRENONE
     Route: 065
     Dates: start: 20121114
  36. REMANTADIN [Concomitant]
     Route: 065
     Dates: start: 20151006, end: 20151006
  37. REMANTADIN [Concomitant]
     Route: 065
     Dates: start: 20151009, end: 20151010
  38. TAVEGYL [Concomitant]
     Active Substance: CLEMASTINE FUMARATE
     Route: 065
     Dates: start: 20160308, end: 20160310
  39. METHYLPREDNISOLONE. [Concomitant]
     Active Substance: METHYLPREDNISOLONE
     Indication: PREMEDICATION
     Dosage: WEEK 1
     Route: 042
     Dates: start: 20121212, end: 20121212
  40. PLACEBO [Suspect]
     Active Substance: UNSPECIFIED INGREDIENT
     Dosage: WEEK 2?THE FIRST CYCLE CONSISTS OF 2 HALF DOSE OF PLACEBO ADMINISTRATIONS SEPARATED BY 14 DAYS FOR T
     Route: 042
     Dates: start: 20121225, end: 20121225
  41. INTERFERON BETA-1A [Suspect]
     Active Substance: INTERFERON BETA-1A
     Indication: RELAPSING-REMITTING MULTIPLE SCLEROSIS
     Dosage: LAST BATCH OF INTERFERON BETA-1A STARTED ON 15/OCT/2014.
     Route: 058
     Dates: start: 20121212
  42. OCRELIZUMAB. [Suspect]
     Active Substance: OCRELIZUMAB
     Dosage: OLE-WEEK 24?CYCLE 6 ONWARDS OF THE OLE PHASE CONSISTS OF A SINGLE OCRELIZUMAB ADMINISTRATION EVERY 2
     Route: 042
     Dates: start: 20150422, end: 20150422
  43. OCRELIZUMAB. [Suspect]
     Active Substance: OCRELIZUMAB
     Dosage: OLE-WEEK 72?CYCLE 6 ONWARDS OF THE OLE PHASE CONSISTS OF A SINGLE OCRELIZUMAB ADMINISTRATION EVERY 2
     Route: 042
     Dates: start: 20160322, end: 20160322
  44. SUMAMED [Concomitant]
     Active Substance: AZITHROMYCIN ANHYDROUS
     Dosage: DOSE REPORTED AS ^500 CAPSULE^.
     Route: 065
     Dates: start: 20130225, end: 20130226
  45. AMBROXOL [Concomitant]
     Active Substance: AMBROXOL
     Route: 065
     Dates: start: 20151006, end: 20151010
  46. METHYLPREDNISOLONE. [Concomitant]
     Active Substance: METHYLPREDNISOLONE
     Dosage: OLE-WEEK 24
     Route: 042
     Dates: start: 20150422, end: 20150422
  47. METHYLPREDNISOLONE. [Concomitant]
     Active Substance: METHYLPREDNISOLONE
     Dosage: OLE-WEEK 120
     Route: 042
     Dates: start: 20170227, end: 20170227
  48. METHYLPREDNISOLONE. [Concomitant]
     Active Substance: METHYLPREDNISOLONE
     Dosage: OLE-WEEK 144
     Route: 042
     Dates: start: 20170810, end: 20170810
  49. QLAIRA [Concomitant]
     Active Substance: DIENOGEST\ESTRADIOL VALERATE
     Route: 065
     Dates: start: 20160713, end: 20170616
  50. PLACEBO [Suspect]
     Active Substance: UNSPECIFIED INGREDIENT
     Dosage: WEEK 48?THE FIRST CYCLE CONSISTS OF 2 HALF DOSE OF PLACEBO ADMINISTRATIONS SEPARATED BY 14 DAYS FOR
     Route: 042
     Dates: start: 20131112, end: 20131112
  51. PLACEBO [Suspect]
     Active Substance: UNSPECIFIED INGREDIENT
     Dosage: WEEK 72?THE FIRST CYCLE CONSISTS OF 2 HALF DOSE OF PLACEBO ADMINISTRATIONS SEPARATED BY 14 DAYS FOR
     Route: 042
     Dates: start: 20140429, end: 20140429
  52. INTERFERON BETA-1A [Suspect]
     Active Substance: INTERFERON BETA-1A
     Dosage: MOST RECENT DOSE OF INTERFERON BETA-1A RECEIVED ON 03/NOV/2014.
     Route: 058
     Dates: start: 20141015

REACTIONS (2)
  - Uterine leiomyoma [Recovered/Resolved]
  - Cervical polyp [Recovered/Resolved]

NARRATIVE: CASE EVENT DATE: 20160618
